FAERS Safety Report 6347936-2 (Version None)
Quarter: 2009Q3

REPORT INFORMATION
  Report Type: 
  Country: None (occurrence: None)
  Receive Date: 20090910
  Receipt Date: 20090903
  Transmission Date: 20100115
  Serious: Yes (Hospitalization)
  Sender: FDA-Public Use
  Company Number: PHHY2009SE38568

PATIENT

DRUGS (1)
  1. VOLTAREN [Suspect]

REACTIONS (1)
  - ACUTE PSYCHOSIS [None]
